FAERS Safety Report 18578624 (Version 1)
Quarter: 2020Q4

REPORT INFORMATION
  Report Type: Spontaneous
  Country: US (occurrence: US)
  Receive Date: 20201204
  Receipt Date: 20201204
  Transmission Date: 20210114
  Serious: No
  Sender: FDA-Public Use
  Company Number: US-ASTRAZENECA-2020SF60241

PATIENT

DRUGS (1)
  1. PRILOSEC OTC [Suspect]
     Active Substance: OMEPRAZOLE MAGNESIUM
     Indication: GASTROINTESTINAL DISORDER
     Route: 048
     Dates: start: 2005, end: 2008

REACTIONS (5)
  - Chronic kidney disease [Unknown]
  - Pain [Unknown]
  - Rebound effect [Unknown]
  - Hyperchlorhydria [Unknown]
  - Drug dependence [Unknown]
